FAERS Safety Report 26188008 (Version 1)
Quarter: 2025Q4

REPORT INFORMATION
  Report Type: Other
  Country: EU (occurrence: EU)
  Receive Date: 20251222
  Receipt Date: 20251222
  Transmission Date: 20260119
  Serious: Yes (Hospitalization)
  Sender: DUCHESNAY
  Company Number: None

PATIENT

DRUGS (1)
  1. DOXYLAMINE SUCCINATE\PYRIDOXINE HYDROCHLORIDE [Suspect]
     Active Substance: DOXYLAMINE SUCCINATE\PYRIDOXINE HYDROCHLORIDE
     Indication: Nausea
     Dosage: EVENING; DOSE: 2 DOSAGE FORM; NUMBER OF UNITS IN THE INTERVAL: 1, DEFINITION OF THE TIME INTERVAL UN
     Route: 048
     Dates: start: 202510

REACTIONS (3)
  - Migraine [Unknown]
  - Fatigue [Not Recovered/Not Resolved]
  - Headache [Not Recovered/Not Resolved]

NARRATIVE: CASE EVENT DATE: 20251001
